FAERS Safety Report 6186380-8 (Version None)
Quarter: 2009Q2

REPORT INFORMATION
  Report Type: 
  Country: None (occurrence: None)
  Receive Date: 20090511
  Receipt Date: 20090430
  Transmission Date: 20091009
  Serious: Yes (Other)
  Sender: FDA-Public Use
  Company Number: BW-GILEAD-2009-0021121

PATIENT
  Sex: Female

DRUGS (4)
  1. TRUVADA [Suspect]
     Indication: HIV INFECTION
     Route: 048
     Dates: start: 20061030, end: 20080214
  2. TRUVADA [Suspect]
     Route: 048
     Dates: start: 20080318, end: 20080328
  3. NEVIRAPINE [Concomitant]
     Indication: HIV INFECTION
     Route: 048
     Dates: start: 20061030, end: 20080907
  4. COMBIVIR [Concomitant]
     Indication: HIV INFECTION
     Dates: start: 20080215, end: 20080907

REACTIONS (1)
  - STILLBIRTH [None]
